FAERS Safety Report 24351064 (Version 1)
Quarter: 2024Q3

REPORT INFORMATION
  Report Type: Report from Study
  Country: AT (occurrence: AT)
  Receive Date: 20240923
  Receipt Date: 20240923
  Transmission Date: 20241017
  Serious: No
  Sender: ROCHE
  Company Number: AT-ROCHE-2788542

PATIENT
  Age: 67 Year
  Sex: Male
  Weight: 93.0 kg

DRUGS (29)
  1. TRASTUZUMAB [Suspect]
     Active Substance: TRASTUZUMAB
     Indication: HER2 positive breast cancer
     Dosage: 26/MAR/2019: MOST RECENT DOSE OF TRASTUZUMAB PRIOR TO THE EVENT
     Route: 041
     Dates: start: 20190305, end: 20190305
  2. TRASTUZUMAB [Suspect]
     Active Substance: TRASTUZUMAB
     Route: 041
     Dates: start: 20190829, end: 20200529
  3. TRASTUZUMAB [Suspect]
     Active Substance: TRASTUZUMAB
     Route: 041
     Dates: start: 20190326, end: 20190627
  4. PERTUZUMAB [Suspect]
     Active Substance: PERTUZUMAB
     Indication: HER2 positive breast cancer
     Route: 042
     Dates: start: 20190305, end: 20190305
  5. PERTUZUMAB [Suspect]
     Active Substance: PERTUZUMAB
     Route: 042
     Dates: start: 20190829, end: 20200529
  6. PERTUZUMAB [Suspect]
     Active Substance: PERTUZUMAB
     Route: 042
     Dates: start: 20190326, end: 20190627
  7. DOCETAXEL [Suspect]
     Active Substance: DOCETAXEL\DOCETAXEL ANHYDROUS
     Indication: HER2 positive breast cancer
     Dosage: 26/MAR/2019: MOST RECENT DOSE OF DOCETAXEL PRIOR TO THE EVENT
     Route: 042
     Dates: start: 20190305, end: 20190325
  8. DOCETAXEL [Suspect]
     Active Substance: DOCETAXEL\DOCETAXEL ANHYDROUS
     Route: 042
     Dates: start: 20190326, end: 20190627
  9. ZOFRAN [Concomitant]
     Active Substance: ONDANSETRON HYDROCHLORIDE
     Dosage: ONGOING = NOT CHECKED
     Route: 048
     Dates: start: 20190305, end: 20190627
  10. ESOMEPRAZOLE [Concomitant]
     Active Substance: ESOMEPRAZOLE
     Dosage: ONGOING = CHECKED
     Route: 048
     Dates: start: 20190305, end: 20200529
  11. ACETAMINOPHEN [Concomitant]
     Active Substance: ACETAMINOPHEN
     Indication: Pain
     Dosage: ONGOING = NOT CHECKED
     Route: 048
     Dates: start: 20190305, end: 20190627
  12. DEXPANTHENOL [Concomitant]
     Active Substance: DEXPANTHENOL
     Dosage: ONGOING = NOT CHECKED
     Route: 048
     Dates: start: 20190305, end: 20190627
  13. POLYETHYLENE GLYCOL 4000 [Concomitant]
     Active Substance: POLYETHYLENE GLYCOL 4000
     Indication: Constipation
     Dosage: ONGOING = NOT CHECKED
     Route: 048
     Dates: start: 20190305, end: 20190627
  14. CHOLECALCIFEROL [Concomitant]
     Active Substance: CHOLECALCIFEROL
     Dosage: ONGOING = CHECKED
     Route: 048
     Dates: start: 20190305
  15. FLUCLOXACILLIN [Concomitant]
     Active Substance: FLUCLOXACILLIN
     Route: 042
     Dates: start: 20190807, end: 20190814
  16. NOVALGIN (METAMIZOLE SODIUM) [Concomitant]
     Active Substance: METAMIZOLE SODIUM
     Indication: Pain
     Dosage: ONGOING = NOT CHECKED
     Route: 042
     Dates: start: 20190807, end: 20190808
  17. FRAGMIN [Concomitant]
     Active Substance: DALTEPARIN SODIUM
     Dosage: ONGOING = NOT CHECKED
     Route: 058
     Dates: start: 20190807, end: 20190814
  18. HAEDENSA [Concomitant]
     Dosage: ONGOING = CHECKED
     Route: 054
     Dates: start: 20190306
  19. EMEND [Concomitant]
     Active Substance: APREPITANT
     Dosage: ONCE A DAY AFTER THERAPY
     Route: 048
     Dates: start: 20190305, end: 20190627
  20. GUAR GUM [Concomitant]
     Active Substance: GUAR GUM
     Route: 048
     Dates: start: 20190305, end: 20190627
  21. LIPEGFILGRASTIM [Concomitant]
     Active Substance: LIPEGFILGRASTIM
     Dosage: ONGOING = NOT CHECKED
     Route: 058
     Dates: start: 20190305, end: 20190627
  22. DEXAMETHASONE [Concomitant]
     Active Substance: DEXAMETHASONE
     Dosage: ONGOING = NOT CHECKED
     Route: 048
     Dates: start: 20190305, end: 20190627
  23. DEXAMETHASONE [Concomitant]
     Active Substance: DEXAMETHASONE
     Dosage: ONGOING = NOT CHECKED
     Route: 042
     Dates: start: 20190305, end: 20190627
  24. ZOFRAN [Concomitant]
     Active Substance: ONDANSETRON HYDROCHLORIDE
     Indication: Nausea
     Dosage: QD, OVER 3 DAYS AFTER BC THERAPY
     Route: 048
     Dates: start: 20190305, end: 20190627
  25. ZOFRAN [Concomitant]
     Active Substance: ONDANSETRON HYDROCHLORIDE
     Dosage: ONGOING = NOT CHECKED
     Route: 048
     Dates: start: 20190305, end: 20190627
  26. DIPHENHYDRAMINE HYDROCHLORIDE [Concomitant]
     Active Substance: DIPHENHYDRAMINE HYDROCHLORIDE
     Indication: Nausea
     Dosage: ONGOING = NOT CHECKED
     Route: 042
     Dates: start: 20190305, end: 20190627
  27. DIPHENHYDRAMINE HYDROCHLORIDE [Concomitant]
     Active Substance: DIPHENHYDRAMINE HYDROCHLORIDE
     Dosage: ONGOING = NOT CHECKED
     Route: 042
     Dates: start: 20190829, end: 20200529
  28. TRIPRIM (AUSTRIA) [Concomitant]
     Route: 048
     Dates: start: 20200228, end: 20200311
  29. SELENASE [Concomitant]
     Route: 048
     Dates: start: 20190305

REACTIONS (2)
  - Hypoacusis [Unknown]
  - Tendon rupture [Recovering/Resolving]

NARRATIVE: CASE EVENT DATE: 20190708
